FAERS Safety Report 5924615-4 (Version None)
Quarter: 2008Q4

REPORT INFORMATION
  Report Type: 
  Country: None (occurrence: None)
  Receive Date: 20081016
  Receipt Date: 20081002
  Transmission Date: 20090506
  Serious: Yes (Other)
  Sender: FDA-Public Use
  Company Number: 2008S1011808

PATIENT
  Age: 18 Year
  Sex: Female
  Weight: 66.2252 kg

DRUGS (6)
  1. AMNESTEEM [Suspect]
     Dosage: 20 MG; DAILY; ORAL
     Route: 048
     Dates: start: 20080212, end: 20080622
  2. AMNESTEEM [Suspect]
     Dosage: 40 MG; DAILY;ORAL
     Route: 048
     Dates: start: 20080212, end: 20080622
  3. CLARAVIS [Suspect]
     Dosage: 20 MG; DAILY; ORAL
     Route: 048
     Dates: start: 20060824, end: 20070101
  4. CLARAVIS [Suspect]
     Dosage: 40 MG; DAILY; ORAL
     Route: 048
     Dates: start: 20060824, end: 20070101
  5. ACCUTANE [Suspect]
     Dosage: ; DAILY;
  6. ACCUTANE [Suspect]
     Dosage: ; DAILY;

REACTIONS (5)
  - ABORTION INDUCED [None]
  - DRUG EXPOSURE DURING PREGNANCY [None]
  - HEPATIC ENZYME INCREASED [None]
  - PREGNANCY [None]
  - TREATMENT NONCOMPLIANCE [None]
